FAERS Safety Report 4394132-4 (Version None)
Quarter: 2004Q3

REPORT INFORMATION
  Report Type: 
  Country: None (occurrence: None)
  Receive Date: 20040712
  Receipt Date: 20040701
  Transmission Date: 20050211
  Serious: Yes (Other)
  Sender: FDA-Public Use
  Company Number: PHBS2004CA09016

PATIENT
  Age: 45 Year
  Sex: Male

DRUGS (1)
  1. LAMISIL [Suspect]
     Dosage: 250 MG/D
     Route: 048
     Dates: start: 20040501, end: 20040630

REACTIONS (5)
  - DIZZINESS [None]
  - DYSSTASIA [None]
  - FALL [None]
  - VOMITING [None]
  - WALKING DISABILITY [None]
